FAERS Safety Report 7508790-6 (Version None)
Quarter: 2011Q2

REPORT INFORMATION
  Report Type: 
  Country: None (occurrence: None)
  Receive Date: 20110527
  Receipt Date: 20110225
  Transmission Date: 20111010
  Serious: No
  Sender: FDA-Public Use
  Company Number: A0915401A

PATIENT
  Age: 64 Year
  Sex: Female

DRUGS (1)
  1. VENTOLIN [Suspect]
     Indication: ILL-DEFINED DISORDER
     Dosage: 1PUFF SIX TIMES PER DAY
     Route: 055
     Dates: start: 20110223

REACTIONS (1)
  - GLOSSODYNIA [None]
